FAERS Safety Report 5447357-0 (Version None)
Quarter: 2007Q3

REPORT INFORMATION
  Report Type: 
  Country: None (occurrence: None)
  Receive Date: 20070905
  Receipt Date: 20070905
  Transmission Date: 20080115
  Serious: Yes (Other)
  Sender: FDA-Public Use
  Company Number: None

PATIENT
  Age: 52 Year
  Sex: Male
  Weight: 67.1324 kg

DRUGS (2)
  1. KEPPRA [Suspect]
     Indication: CONVULSION
     Dosage: 750MG/REDUCED TO 375MG-1/2 TAB 2X/DAY PO
     Route: 048
     Dates: start: 20070811, end: 20070824
  2. KEPPRA [Suspect]
     Dosage: 250 MG 2X/DAY PO
     Route: 048
     Dates: start: 20070824, end: 20070828

REACTIONS (9)
  - APHASIA [None]
  - DEPRESSION [None]
  - EXPRESSIVE LANGUAGE DISORDER [None]
  - EYE IRRITATION [None]
  - FATIGUE [None]
  - HYPERSOMNIA [None]
  - SOMNOLENCE [None]
  - VISION BLURRED [None]
  - VISUAL DISTURBANCE [None]
